FAERS Safety Report 5028830-6 (Version None)
Quarter: 2006Q2

REPORT INFORMATION
  Report Type: 
  Country: None (occurrence: None)
  Receive Date: 20060619
  Receipt Date: 20051227
  Transmission Date: 20061013
  Serious: Yes (Death)
  Sender: FDA-Public Use
  Company Number: JP-BRISTOL-MYERS SQUIBB COMPANY-13230271

PATIENT
  Age: 74 Year
  Sex: Male

DRUGS (7)
  1. PARAPLATIN [Suspect]
     Indication: LUNG NEOPLASM MALIGNANT
     Route: 041
     Dates: start: 20050927, end: 20051201
  2. TAXOL [Suspect]
     Indication: LUNG NEOPLASM MALIGNANT
     Route: 041
     Dates: start: 20050927, end: 20051201
  3. OXYCONTIN [Concomitant]
     Route: 048
     Dates: start: 20050929, end: 20051202
  4. MAGNESIUM OXIDE [Concomitant]
     Dates: start: 20050929, end: 20051202
  5. NOVAMIN [Concomitant]
     Route: 048
     Dates: start: 20050929, end: 20051202
  6. LOXOPROFEN [Concomitant]
     Route: 048
     Dates: start: 20051007, end: 20051202
  7. MUCOSTA [Concomitant]
     Route: 048
     Dates: start: 20051007, end: 20051202

REACTIONS (1)
  - TUMOUR LYSIS SYNDROME [None]
